FAERS Safety Report 6326868-X (Version None)
Quarter: 2009Q3

REPORT INFORMATION
  Report Type: 
  Country: None (occurrence: None)
  Receive Date: 20090825
  Receipt Date: 20090817
  Transmission Date: 20100115
  Serious: Yes (Hospitalization)
  Sender: FDA-Public Use
  Company Number: IN-ELI_LILLY_AND_COMPANY-IN200908003896

PATIENT
  Sex: Male

DRUGS (1)
  1. GEMCITE [Suspect]
     Indication: NON-SMALL CELL LUNG CANCER
     Dosage: 1000 MG/M2 OVER 30 MINUTES ON DAY 1 AND 8, UNKNOWN
     Route: 042

REACTIONS (1)
  - HICCUPS [None]
